FAERS Safety Report 9988077 (Version 2)
Quarter: 2014Q2

REPORT INFORMATION
  Report Type: Spontaneous
  Country: US (occurrence: US)
  Receive Date: 20140308
  Receipt Date: 20140430
  Transmission Date: 20141212
  Serious: No
  Sender: FDA-Public Use
  Company Number: US-B.I. PHARMACEUTICALS,INC./RIDGEFIELD-2014-BI-08389BP

PATIENT
  Sex: Male
  Weight: 80 kg

DRUGS (14)
  1. TRADJENTA [Suspect]
     Indication: TYPE 2 DIABETES MELLITUS
     Dosage: 5 MG
     Route: 048
     Dates: start: 20140116
  2. ARICEPT [Concomitant]
     Dosage: 10 MG
     Route: 048
  3. CELEXA [Concomitant]
     Dosage: 20 MG
     Route: 048
  4. PLAVIX [Concomitant]
     Dosage: 75 MG
     Route: 048
  5. LORCET [Concomitant]
     Dosage: STRENGTH: 7.5 MG/325 MG; DAILY DOSE: 15 MG/650 MG
     Route: 048
  6. ATORVASTATIN [Concomitant]
     Dosage: 20 MG
     Route: 048
  7. XANAX [Concomitant]
     Indication: ANXIETY
     Dosage: 0.25 MG
     Route: 048
  8. ISOSORBIDE MONONITRATE ER [Concomitant]
     Dosage: 120 MG
     Route: 048
  9. NEURONTIN [Concomitant]
     Dosage: 100 MG
     Route: 048
  10. ASPIRIN [Concomitant]
     Dosage: 81 MG
     Route: 048
  11. LOSARTAN [Concomitant]
     Dosage: 25 MG
     Route: 048
  12. METOPROLOL TARTRATE [Concomitant]
     Dosage: 50 MG
     Route: 048
  13. ALPRAZOLAM [Concomitant]
     Indication: ANXIETY
     Dosage: DOSE PER APPLICATION AND DAILY DOSE: 0.25
     Route: 065
  14. FLOMAX [Concomitant]
     Dosage: DOSE PER APPLICATION AND DAILY DOSE: 0.4
     Route: 065

REACTIONS (7)
  - Nausea [Not Recovered/Not Resolved]
  - Blood glucose increased [Not Recovered/Not Resolved]
  - Vomiting [Not Recovered/Not Resolved]
  - Blood creatinine increased [Unknown]
  - Blood urea increased [Unknown]
  - Gallbladder disorder [Recovered/Resolved]
  - Nausea [Recovered/Resolved]
